FAERS Safety Report 5382336-3 (Version None)
Quarter: 2007Q3

REPORT INFORMATION
  Report Type: 
  Country: None (occurrence: None)
  Receive Date: 20070709
  Receipt Date: 20070625
  Transmission Date: 20080115
  Serious: Yes (Hospitalization)
  Sender: FDA-Public Use
  Company Number: US-ELI_LILLY_AND_COMPANY-US200706005871

PATIENT
  Age: 49 Year
  Sex: Male
  Weight: 103.85 kg

DRUGS (5)
  1. SOMATROPIN [Suspect]
     Indication: HYPOPITUITARISM
     Dosage: 0.2 MG, DAILY (1/D)
     Route: 030
     Dates: end: 20070116
  2. HYDROCORTISONE [Concomitant]
     Dates: start: 19950927
  3. LEVOTHYROXINE SODIUM [Concomitant]
     Dates: start: 19950927
  4. TESTOSTERONE [Concomitant]
     Indication: BLOOD TESTOSTERONE DECREASED
     Dates: start: 19950927
  5. FEXOFENADINE [Concomitant]
     Indication: HYPERSENSITIVITY
     Dates: start: 20010401

REACTIONS (4)
  - DIPLOPIA [None]
  - DIZZINESS [None]
  - HAEMORRHAGE [None]
  - HEADACHE [None]
